FAERS Safety Report 5173249-0 (Version None)
Quarter: 2006Q4

REPORT INFORMATION
  Report Type: 
  Country: None (occurrence: None)
  Receive Date: 20061206
  Receipt Date: 20061127
  Transmission Date: 20070319
  Serious: Yes (Hospitalization, Other)
  Sender: FDA-Public Use
  Company Number: 2006BI010629

PATIENT
  Age: 51 Year
  Sex: Female

DRUGS (11)
  1. AVONEX [Suspect]
     Indication: DRUG USE FOR UNKNOWN INDICATION
  2. CELEBREX [Concomitant]
  3. LEXAPRO [Concomitant]
  4. WELLBUTRIN [Concomitant]
  5. DITROPAN XL [Concomitant]
  6. ZOCOR [Concomitant]
  7. ATIVAN [Concomitant]
  8. NEXIUM [Concomitant]
  9. GLUCOSAMINE [Concomitant]
  10. LIDODERM PATCH [Concomitant]
  11. TIZANIDINE HCL [Concomitant]

REACTIONS (1)
  - LUNG ADENOCARCINOMA [None]
